FAERS Safety Report 10175134 (Version 1)
Quarter: 2014Q2

REPORT INFORMATION
  Report Type: Spontaneous
  Country: US (occurrence: US)
  Receive Date: 20140515
  Receipt Date: 20140515
  Transmission Date: 20141212
  Serious: Yes (Other)
  Sender: FDA-Public Use
  Company Number: CHPA2014US006497

PATIENT
  Age: 35 Year
  Sex: Female

DRUGS (1)
  1. DESENEX (UNDECYLENIC ACID) [Suspect]
     Indication: TINEA PEDIS
     Dosage: UNK
     Route: 061
     Dates: start: 20140511, end: 20140512

REACTIONS (8)
  - Cellulitis [Not Recovered/Not Resolved]
  - Application site erythema [Not Recovered/Not Resolved]
  - Application site swelling [Not Recovered/Not Resolved]
  - Rash [Not Recovered/Not Resolved]
  - Erythema [Not Recovered/Not Resolved]
  - Peripheral swelling [Not Recovered/Not Resolved]
  - Gait disturbance [Not Recovered/Not Resolved]
  - Hypersensitivity [Not Recovered/Not Resolved]
